FAERS Safety Report 21748744 (Version 7)
Quarter: 2023Q2

REPORT INFORMATION
  Report Type: Report from Study
  Country: CN (occurrence: None)
  Receive Date: 20221219
  Receipt Date: 20230622
  Transmission Date: 20230721
  Serious: Yes (Hospitalization)
  Sender: FDA-Public Use
  Company Number: CN-Eisai Medical Research-EC-2022-129668

PATIENT
  Age: 59 Year
  Sex: Female
  Weight: 38 kg

DRUGS (3)
  1. LENVATINIB [Suspect]
     Active Substance: LENVATINIB
     Indication: Endometrial cancer
     Dosage: STARTING DOSE AT 20 MG, FLUCTUATED DOSAGE
     Route: 048
     Dates: start: 20220215, end: 20221025
  2. LENVATINIB [Suspect]
     Active Substance: LENVATINIB
     Route: 048
     Dates: start: 20221027, end: 20221114
  3. PEMBROLIZUMAB [Suspect]
     Active Substance: PEMBROLIZUMAB
     Indication: Endometrial cancer
     Dosage: DOSE UNKNOWN
     Route: 041
     Dates: start: 20220215, end: 20221027

REACTIONS (3)
  - Pain [Recovered/Resolved]
  - Upper-airway cough syndrome [Recovered/Resolved]
  - Arteriosclerosis coronary artery [Recovering/Resolving]

NARRATIVE: CASE EVENT DATE: 20221113
